FAERS Safety Report 8668280 (Version 3)
Quarter: 2012Q4

REPORT INFORMATION
  Report Type: 
  Country: SI (occurrence: SI)
  Receive Date: 20120717
  Receipt Date: 20121023
  Transmission Date: 20130627
  Serious: Yes (Life-Threatening)
  Sender: FDA-Public Use
  Company Number: SI-ROCHE-782273

PATIENT
  Age: 55 Year
  Sex: Male

DRUGS (1)
  1. MABTHERA [Suspect]
     Indication: MANTLE CELL LYMPHOMA STAGE IV
     Dosage: FREQUENCY: 2 CYCLES OF 4 WEEKS MONOTHERAPY AFTER AUTOLOGOUS TRANSPLANTATION
     Route: 042
     Dates: start: 201004, end: 201009

REACTIONS (4)
  - Progressive multifocal leukoencephalopathy [Recovered/Resolved]
  - Somnolence [Unknown]
  - Depression [Unknown]
  - Headache [Unknown]
